FAERS Safety Report 8205804-5 (Version None)
Quarter: 2012Q1

REPORT INFORMATION
  Report Type: 
  Country: None (occurrence: None)
  Receive Date: 20120313
  Receipt Date: 20120301
  Transmission Date: 20120608
  Serious: Yes (Hospitalization)
  Sender: FDA-Public Use
  Company Number: US-ELI_LILLY_AND_COMPANY-US201201008827

PATIENT
  Sex: Female

DRUGS (9)
  1. VITAMIN B COMPLEX CAP [Concomitant]
     Dosage: UNK, BID
  2. LISINOPRIL [Concomitant]
     Indication: HYPERTENSION
  3. FORTEO [Suspect]
     Dosage: 20 UG, QD
  4. CRESTOR [Concomitant]
  5. SYNTHROID [Concomitant]
     Dosage: UNK, QD
  6. ACIPHEX [Concomitant]
     Dosage: UNK, QD
  7. VITAMIN D [Concomitant]
  8. FORTEO [Suspect]
     Indication: OSTEOPOROSIS
     Dosage: 20 UG, QD
     Dates: start: 20111215
  9. ASPIRIN [Concomitant]

REACTIONS (2)
  - MALAISE [None]
  - CLOSTRIDIAL INFECTION [None]
